FAERS Safety Report 9610517 (Version 1)
Quarter: 2013Q4

REPORT INFORMATION
  Report Type: Spontaneous
  Country: US (occurrence: US)
  Receive Date: 20131009
  Receipt Date: 20131009
  Transmission Date: 20140711
  Serious: Yes (Other)
  Sender: FDA-Public Use
  Company Number: US-PFIZER INC-2013285371

PATIENT
  Age: 58 Year
  Sex: Female
  Weight: 72.6 kg

DRUGS (10)
  1. LEVOXYL [Suspect]
     Indication: AUTOIMMUNE THYROIDITIS
     Dosage: UNK
     Dates: start: 2008, end: 2008
  2. LEVOXYL [Suspect]
     Dosage: UNK
     Dates: end: 2013
  3. LEVOTHYROXINE SODIUM [Suspect]
     Indication: AUTOIMMUNE THYROIDITIS
     Dosage: UNK
     Dates: start: 2008, end: 2008
  4. LEVOTHYROXINE SODIUM [Suspect]
     Dosage: UNK
     Dates: end: 2013
  5. SYNTHROID [Suspect]
     Indication: AUTOIMMUNE THYROIDITIS
     Dosage: 25 UG, 1X/DAY
     Dates: start: 2008, end: 2008
  6. SYNTHROID [Suspect]
     Dosage: 25 UG, UNK
     Dates: start: 2010, end: 2010
  7. SYNTHROID [Suspect]
     Dosage: UNK
     Dates: end: 2013
  8. HYDROCODONE [Concomitant]
     Indication: SPINAL COLUMN STENOSIS
     Dosage: UNK
  9. HYDROCODONE [Concomitant]
     Indication: BONE DISORDER
  10. HYDROCODONE [Concomitant]
     Indication: PAIN

REACTIONS (7)
  - Hyperthyroidism [Unknown]
  - Hyperacusis [Recovered/Resolved]
  - Nightmare [Recovered/Resolved]
  - Panic attack [Recovered/Resolved]
  - Dyspnoea exertional [Recovered/Resolved]
  - Heart rate increased [Recovered/Resolved]
  - Blood thyroid stimulating hormone increased [Unknown]
